FAERS Safety Report 9386481 (Version 3)
Quarter: 2013Q3

REPORT INFORMATION
  Report Type: Report from Study
  Country: US (occurrence: US)
  Receive Date: 20130708
  Receipt Date: 20130805
  Transmission Date: 20140515
  Serious: Yes (Hospitalization)
  Sender: FDA-Public Use
  Company Number: US-BIOGENIDEC-2013BI059277

PATIENT
  Age: 59 Year
  Sex: Female
  Weight: 65 kg

DRUGS (24)
  1. TECFIDERA [Suspect]
     Indication: MULTIPLE SCLEROSIS
     Route: 048
     Dates: start: 20130530, end: 20130605
  2. TECFIDERA [Suspect]
     Indication: MULTIPLE SCLEROSIS
     Route: 048
     Dates: start: 20130606
  3. ADDERALL [Concomitant]
     Indication: FATIGUE
     Route: 048
     Dates: start: 2008, end: 201306
  4. PRIMIDONE [Concomitant]
     Indication: TREMOR
     Route: 048
     Dates: start: 20121001
  5. ZIPRASIDONE [Concomitant]
     Indication: DEPRESSION
     Route: 048
     Dates: start: 1983
  6. METOPROLOL [Concomitant]
     Indication: ATRIAL FIBRILLATION
     Route: 048
     Dates: start: 201209
  7. METOPROLOL [Concomitant]
     Indication: ATRIAL FIBRILLATION
     Route: 048
  8. DIGOXIN [Concomitant]
     Indication: ATRIAL FIBRILLATION
     Route: 048
     Dates: start: 201209, end: 20130705
  9. BACLOFEN [Concomitant]
     Indication: MUSCLE SPASMS
     Route: 048
     Dates: start: 201210
  10. LEVOTHYROXINE [Concomitant]
     Indication: HYPOTHYROIDISM
     Route: 048
     Dates: start: 1985
  11. GABAPENTIN [Concomitant]
     Indication: NECK PAIN
     Route: 048
     Dates: start: 2010
  12. VENLAFAXINE ER [Concomitant]
     Indication: DEPRESSION
     Route: 048
     Dates: start: 20130604
  13. CYANOCOBALAMIN [Concomitant]
     Indication: VITAMIN B12 DEFICIENCY
     Route: 030
     Dates: start: 1998
  14. VALACYCLOVIR [Concomitant]
     Indication: HERPES ZOSTER
     Route: 048
     Dates: start: 20130319, end: 20130326
  15. ASPIRIN [Concomitant]
     Indication: PROPHYLAXIS
     Route: 048
     Dates: start: 20130614
  16. VESICARE [Concomitant]
     Indication: HYPERTONIC BLADDER
     Route: 048
     Dates: start: 201206
  17. AMIODARONE [Concomitant]
     Route: 048
  18. PREMPRO [Concomitant]
     Indication: OESTROGEN REPLACEMENT THERAPY
     Route: 048
     Dates: start: 201302
  19. RIFAMPIN [Concomitant]
     Indication: LATENT TUBERCULOSIS
     Route: 048
     Dates: start: 20130319
  20. LORTAB [Concomitant]
     Indication: NECK PAIN
     Route: 048
     Dates: start: 2010
  21. PROAIR [Concomitant]
     Indication: ASTHMA
     Dosage: DOSE UNIT:2 UNKNOWN
     Route: 055
     Dates: start: 200803
  22. SPIRIVA [Concomitant]
     Indication: ASTHMA
     Dosage: DOSE UNIT:2 UNKNOWN
     Route: 055
     Dates: start: 200803
  23. HYDRO-CODONE [Concomitant]
     Indication: NECK PAIN
     Route: 048
     Dates: start: 2010
  24. BENADRYL [Concomitant]
     Route: 048
     Dates: start: 20130610

REACTIONS (1)
  - Atrial fibrillation [Recovered/Resolved]
